FAERS Safety Report 12839277 (Version 1)
Quarter: 2016Q4

REPORT INFORMATION
  Report Type: Spontaneous
  Country: US (occurrence: US)
  Receive Date: 20161010
  Receipt Date: 20161010
  Transmission Date: 20170207
  Serious: Yes (Other)
  Sender: FDA-Public Use
  Company Number: None

PATIENT
  Age: 74 Year
  Sex: Female
  Weight: 66.6 kg

DRUGS (5)
  1. KRILL OIL [Concomitant]
     Active Substance: DIETARY SUPPLEMENT
  2. MAGNESIUM [Concomitant]
     Active Substance: MAGNESIUM
  3. LORATADINE. [Suspect]
     Active Substance: LORATADINE
     Indication: MULTIPLE ALLERGIES
  4. CALCIUM WITH D3 [Concomitant]
  5. B6 [Concomitant]
     Active Substance: PYRIDOXINE HYDROCHLORIDE

REACTIONS (1)
  - Hypertension [None]

NARRATIVE: CASE EVENT DATE: 20160906
